FAERS Safety Report 7984573-8 (Version None)
Quarter: 2011Q4

REPORT INFORMATION
  Report Type: 
  Country: None (occurrence: None)
  Receive Date: 20111216
  Receipt Date: 20111209
  Transmission Date: 20120403
  Serious: Yes (Other)
  Sender: FDA-Public Use
  Company Number: US-JNJFOC-20111204645

PATIENT
  Sex: Male
  Weight: 117.94 kg

DRUGS (1)
  1. STELARA [Suspect]
     Indication: PSORIASIS
     Route: 058
     Dates: start: 20111208

REACTIONS (3)
  - PHARYNGEAL OEDEMA [None]
  - APPLICATION SITE SWELLING [None]
  - HYPERSENSITIVITY [None]
